FAERS Safety Report 21335828 (Version 1)
Quarter: 2022Q3

REPORT INFORMATION
  Report Type: Spontaneous
  Country: US (occurrence: US)
  Receive Date: 20220915
  Receipt Date: 20220915
  Transmission Date: 20221026
  Serious: Yes (Hospitalization)
  Sender: FDA-Public Use
  Company Number: US-NOVOPROD-956851

PATIENT
  Sex: Female

DRUGS (1)
  1. OZEMPIC [Suspect]
     Active Substance: SEMAGLUTIDE
     Indication: Product used for unknown indication
     Dosage: 0.25 MG
     Route: 058
     Dates: start: 20220830, end: 202209

REACTIONS (7)
  - White blood cell count increased [Unknown]
  - Red blood cell count increased [Unknown]
  - Pyrexia [Unknown]
  - Hypophagia [Unknown]
  - Dehydration [Not Recovered/Not Resolved]
  - Nausea [Unknown]
  - Vomiting [Unknown]

NARRATIVE: CASE EVENT DATE: 20220901
